FAERS Safety Report 22196214 (Version 2)
Quarter: 2023Q2

REPORT INFORMATION
  Report Type: Spontaneous
  Country: GB (occurrence: GB)
  Receive Date: 20230411
  Receipt Date: 20230531
  Transmission Date: 20230721
  Serious: Yes (Hospitalization)
  Sender: FDA-Public Use
  Company Number: GB-MYLANLABS-2023M1037037

PATIENT
  Sex: Male

DRUGS (2)
  1. CLOZARIL [Suspect]
     Active Substance: CLOZAPINE
     Indication: Schizophrenia
     Dosage: 100 MILLIGRAM, QD (MORNING)
     Route: 048
     Dates: start: 20090706
  2. CLOZARIL [Suspect]
     Active Substance: CLOZAPINE
     Dosage: 150 MILLIGRAM, QD (NIGHT)
     Route: 048
     Dates: start: 20090706

REACTIONS (3)
  - Muscular weakness [Recovered/Resolved]
  - Incontinence [Recovered/Resolved]
  - Product dose omission issue [Unknown]
